FAERS Safety Report 16183970 (Version 1)
Quarter: 2019Q2

REPORT INFORMATION
  Report Type: Spontaneous
  Country: US (occurrence: US)
  Receive Date: 20190411
  Receipt Date: 20190411
  Transmission Date: 20190711
  Serious: No
  Sender: FDA-Public Use
  Company Number: US-AMGEN-USASP2019056046

PATIENT
  Age: 12 Year
  Sex: Male

DRUGS (3)
  1. ENBREL [Suspect]
     Active Substance: ETANERCEPT
     Indication: RHEUMATOID ARTHRITIS
     Dosage: 25 MILLIGRAM, QWK
     Route: 065
     Dates: start: 201805, end: 201903
  2. ENBREL [Suspect]
     Active Substance: ETANERCEPT
     Dosage: 25 MILLIGRAM, QWK
     Route: 065
     Dates: start: 20190320
  3. AMOXICILLIN. [Suspect]
     Active Substance: AMOXICILLIN
     Indication: EAR INFECTION
     Dosage: UNK
     Route: 065
     Dates: start: 20190313, end: 20190322

REACTIONS (5)
  - Urticaria [Not Recovered/Not Resolved]
  - Rash [Not Recovered/Not Resolved]
  - Off label use [Unknown]
  - Ear infection [Unknown]
  - Pyrexia [Not Recovered/Not Resolved]

NARRATIVE: CASE EVENT DATE: 201805
